FAERS Safety Report 24721000 (Version 1)
Quarter: 2024Q4

REPORT INFORMATION
  Report Type: Other
  Country: CA (occurrence: CA)
  Receive Date: 20241211
  Receipt Date: 20241211
  Transmission Date: 20250114
  Serious: Yes (Hospitalization, Other)
  Sender: TOLMAR
  Company Number: CA-TOLMAR, INC.-24CA053774

PATIENT
  Age: 71 Year
  Sex: Male

DRUGS (4)
  1. ELIGARD [Suspect]
     Active Substance: LEUPROLIDE ACETATE
     Indication: Prostate cancer
     Dosage: 22.5 MILLIGRAM, Q 3 MONTH
     Route: 058
     Dates: start: 20240807
  2. ELIGARD [Suspect]
     Active Substance: LEUPROLIDE ACETATE
     Dosage: 22.5 MILLIGRAM, Q 3 MONTH
     Route: 058
     Dates: start: 20200609
  3. ELIGARD [Suspect]
     Active Substance: LEUPROLIDE ACETATE
     Dosage: 22.5 MILLIGRAM, Q 3 MONTH
     Route: 058
     Dates: start: 20241130
  4. ELIGARD [Suspect]
     Active Substance: LEUPROLIDE ACETATE
     Indication: Prostate cancer
     Dosage: UNK

REACTIONS (7)
  - Calculus bladder [Recovering/Resolving]
  - Bladder injury [Unknown]
  - Post procedural complication [Unknown]
  - Urinary bladder haemorrhage [Unknown]
  - Blood urine present [Unknown]
  - Blood pressure abnormal [Unknown]
  - Intentional product use issue [Recovered/Resolved]

NARRATIVE: CASE EVENT DATE: 20241118
